FAERS Safety Report 11235446 (Version 1)
Quarter: 2015Q3

REPORT INFORMATION
  Report Type: Spontaneous
  Country: GB (occurrence: GB)
  Receive Date: 20150702
  Receipt Date: 20150702
  Transmission Date: 20151125
  Serious: Yes (Other)
  Sender: FDA-Public Use
  Company Number: GB-FRESENIUS KABI-FK201503127

PATIENT
  Age: 35 Year
  Sex: Male

DRUGS (1)
  1. INDOMETHACIN (MANUFACTURER UNKNOWN) (INDOMETHACIN FOR INJECTION) [Suspect]
     Active Substance: INDOMETHACIN
     Indication: RENAL AMYLOIDOSIS
     Route: 065

REACTIONS (1)
  - Crohn^s disease [Recovered/Resolved]
